FAERS Safety Report 4522724-8 (Version None)
Quarter: 2004Q4

REPORT INFORMATION
  Report Type: 
  Country: None (occurrence: None)
  Receive Date: 20041207
  Receipt Date: 20041124
  Transmission Date: 20050328
  Serious: Yes (Hospitalization)
  Sender: FDA-Public Use
  Company Number: 2004011652

PATIENT
  Age: 37 Year
  Sex: Male
  Weight: 58 kg

DRUGS (7)
  1. FLUCONAZOLE [Suspect]
     Indication: ILL-DEFINED DISORDER
     Dosage: ORAL
     Route: 048
     Dates: start: 20031229, end: 20040112
  2. CLINDAMYCIN (CLINDAMYCIN) [Suspect]
     Indication: ILL-DEFINED DISORDER
     Dosage: 2.4 GRAM (1 IN 1 D), ORAL
     Route: 048
     Dates: start: 20031231, end: 20040105
  3. SULFADIAZINE [Suspect]
     Indication: ILL-DEFINED DISORDER
     Dosage: SEE IMAGE
     Route: 048
     Dates: start: 20031229
  4. SULFADIAZINE [Suspect]
     Indication: ILL-DEFINED DISORDER
     Dosage: SEE IMAGE
     Route: 048
     Dates: start: 20040105
  5. PYRIMETHAMINE TAB [Suspect]
     Indication: ILL-DEFINED DISORDER
     Dosage: 50 MG (1 IN 1 D), ORAL
     Route: 048
     Dates: start: 20031229, end: 20040113
  6. AMOXICILLIN W/CLAVULANATE POTASSIUM (AMOXICILLIN W/CLAVULANATE POTASSI [Suspect]
     Dosage: ORAL
     Route: 048
  7. CEFUROXIME [Suspect]
     Indication: ILL-DEFINED DISORDER
     Dosage: 1 GRAM (1 IN 1 D), ORAL
     Route: 048
     Dates: start: 20031229, end: 20040113

REACTIONS (6)
  - CONJUNCTIVAL DISORDER [None]
  - GASTROINTESTINAL DISORDER [None]
  - HAEMOGLOBIN DECREASED [None]
  - INJURY [None]
  - LUNG DISORDER [None]
  - TOXIC EPIDERMAL NECROLYSIS [None]
